FAERS Safety Report 19950422 (Version 1)
Quarter: 2021Q4

REPORT INFORMATION
  Report Type: Spontaneous
  Country: US (occurrence: US)
  Receive Date: 20211013
  Receipt Date: 20211013
  Transmission Date: 20220303
  Serious: Yes (Life-Threatening)
  Sender: FDA-Public Use
  Company Number: None

PATIENT
  Age: 28 Year
  Sex: Male
  Weight: 66.5 kg

DRUGS (8)
  1. MODAFINIL [Suspect]
     Active Substance: MODAFINIL
     Indication: Neuroprosthesis implantation
     Route: 048
     Dates: start: 20210908, end: 20210928
  2. ACETAMINOPHEN [Concomitant]
     Active Substance: ACETAMINOPHEN
     Dates: start: 20210816, end: 20211008
  3. AMANTADINE. [Concomitant]
     Active Substance: AMANTADINE HYDROCHLORIDE
     Dates: start: 20210913, end: 20210928
  4. Peridex (Chlorhexidine mouth rinse) [Concomitant]
     Dates: start: 20210816, end: 20211013
  5. FAMOTIDINE [Concomitant]
     Active Substance: FAMOTIDINE
     Dates: start: 20210815, end: 20211013
  6. INSULIN LISPRO [Concomitant]
     Active Substance: INSULIN LISPRO
     Dates: start: 20210816, end: 20211013
  7. MIDODRINE [Concomitant]
     Active Substance: MIDODRINE
     Dates: start: 20210824, end: 20210927
  8. POLYETHYLENE GLYCOLS [Concomitant]
     Active Substance: POLYETHYLENE GLYCOLS
     Dates: start: 20210816, end: 20211012

REACTIONS (5)
  - Rash macular [None]
  - Rash vesicular [None]
  - Drug reaction with eosinophilia and systemic symptoms [None]
  - Eosinophilia [None]
  - Transaminases increased [None]

NARRATIVE: CASE EVENT DATE: 20210927
